FAERS Safety Report 13874197 (Version 1)
Quarter: 2017Q3

REPORT INFORMATION
  Report Type: Report from Study
  Country: BR (occurrence: BR)
  Receive Date: 20170816
  Receipt Date: 20170816
  Transmission Date: 20171127
  Serious: Yes (Other)
  Sender: FDA-Public Use
  Company Number: BR-BRISTOL-MYERS SQUIBB COMPANY-BMS-2017-073544

PATIENT
  Sex: Female

DRUGS (1)
  1. ABATACEPT [Suspect]
     Active Substance: ABATACEPT
     Indication: RHEUMATOID ARTHRITIS
     Dosage: 4 DF, Q4MO
     Route: 042
     Dates: start: 201611

REACTIONS (4)
  - Ear pain [Recovered/Resolved]
  - Pharyngitis [Recovered/Resolved]
  - Influenza [Recovered/Resolved]
  - Gastric disorder [Recovered/Resolved]
